FAERS Safety Report 24104833 (Version 4)
Quarter: 2024Q3

REPORT INFORMATION
  Report Type: Spontaneous
  Country: CA (occurrence: CA)
  Receive Date: 20240717
  Receipt Date: 20240920
  Transmission Date: 20241017
  Serious: Yes (Other)
  Sender: CELLTRION
  Company Number: CA-PFIZER INC-202400203008

PATIENT

DRUGS (16)
  1. INFLECTRA [Suspect]
     Active Substance: INFLIXIMAB-DYYB
     Indication: Crohn^s disease
     Dosage: 400 MG Q 0, 2, 6 WEEKS, THEN EVERY 8 WEEKS
     Route: 041
     Dates: start: 20170830, end: 20191204
  2. INFLECTRA [Suspect]
     Active Substance: INFLIXIMAB-DYYB
     Dosage: 400 MG, EVERY 6 WEEKS
     Route: 041
     Dates: start: 20200129, end: 20201021
  3. INFLECTRA [Suspect]
     Active Substance: INFLIXIMAB-DYYB
     Dosage: 7.5 MG/KG, EVERY 6 WEEKS (1 DF)
     Route: 041
     Dates: start: 20201202, end: 20210630
  4. INFLECTRA [Suspect]
     Active Substance: INFLIXIMAB-DYYB
     Dosage: 7.5 MG/KG, EVERY 4 WEEKS (1 DF)
     Route: 041
     Dates: start: 20210729
  5. INFLECTRA [Suspect]
     Active Substance: INFLIXIMAB-DYYB
     Dosage: 7.5 MG/KG, EVERY 4 WEEKS
     Route: 041
     Dates: start: 20240604
  6. INFLECTRA [Suspect]
     Active Substance: INFLIXIMAB-DYYB
     Dosage: 7.5 MG/KG, EVERY 4 WEEKS
     Route: 041
     Dates: start: 20240806
  7. ADVAIR HFA [Concomitant]
     Active Substance: FLUTICASONE PROPIONATE\SALMETEROL XINAFOATE
     Dosage: 1 DF
  8. CELEBREX [Concomitant]
     Active Substance: CELECOXIB
     Dosage: 1 DF
     Dates: start: 202210
  9. ENTOCORT [Concomitant]
     Active Substance: BUDESONIDE
     Dosage: 9 MG, 1X/DAY
     Route: 065
  10. ULIPRISTAL [Concomitant]
     Active Substance: ULIPRISTAL
     Dosage: 5 MG, 1X/DAY
     Route: 048
     Dates: start: 201709
  11. FOLIC ACID [Concomitant]
     Active Substance: FOLIC ACID
     Dosage: 1 DF
  12. IRON [Concomitant]
     Active Substance: IRON
     Dosage: 1 DF
  13. METHOTREXATE [Concomitant]
     Active Substance: METHOTREXATE
     Indication: Crohn^s disease
     Dosage: 1 DF, DOSAGE INFO: UNKNOWN
     Route: 065
  14. PANTOPRAZOLE [Concomitant]
     Active Substance: PANTOPRAZOLE
     Dosage: 1 DF
  15. THIAMINE [Concomitant]
     Active Substance: THIAMINE
     Dosage: 100 MG
  16. VENTOLIN [Concomitant]
     Active Substance: ALBUTEROL SULFATE
     Dosage: 1 DF

REACTIONS (5)
  - Pharyngitis streptococcal [Not Recovered/Not Resolved]
  - Uveitis [Unknown]
  - Condition aggravated [Unknown]
  - Eye inflammation [Unknown]
  - Reflux laryngitis [Not Recovered/Not Resolved]

NARRATIVE: CASE EVENT DATE: 20240101
